FAERS Safety Report 4825287-2 (Version None)
Quarter: 2005Q4

REPORT INFORMATION
  Report Type: 
  Country: None (occurrence: None)
  Receive Date: 20051109
  Receipt Date: 20051027
  Transmission Date: 20060501
  Serious: Yes (Death, Hospitalization)
  Sender: FDA-Public Use
  Company Number: 2005148193

PATIENT
  Age: 55 Year
  Sex: Male
  Weight: 77 kg

DRUGS (4)
  1. CELEBRA (CELECOXIB) [Suspect]
     Indication: PSORIATIC ARTHROPATHY
     Dosage: 400 MG (200 MG, 2 IN 1 D), ORAL
     Route: 048
     Dates: start: 20010628, end: 20020901
  2. METHOTREXATE [Concomitant]
  3. FOLIC ACID [Concomitant]
  4. ALL OTHER THERAPEUTIC PRODUCTS (ALL OTHER THERAPEUTIC PRODUCTS) [Concomitant]

REACTIONS (18)
  - ABASIA [None]
  - ANXIETY [None]
  - ATRIAL FLUTTER [None]
  - BLOOD PRESSURE SYSTOLIC INCREASED [None]
  - CARDIAC FAILURE [None]
  - CARDIAC FIBRILLATION [None]
  - CHOKING [None]
  - CORONARY ARTERY OCCLUSION [None]
  - CORONARY ARTERY STENOSIS [None]
  - COUGH [None]
  - FATIGUE [None]
  - HEART RATE DECREASED [None]
  - INCREASED UPPER AIRWAY SECRETION [None]
  - INSOMNIA [None]
  - MITRAL VALVE INCOMPETENCE [None]
  - MYOCARDIAL ISCHAEMIA [None]
  - POST PROCEDURAL COMPLICATION [None]
  - SLEEP DISORDER [None]
